FAERS Safety Report 6701243-4 (Version None)
Quarter: 2010Q2

REPORT INFORMATION
  Report Type: 
  Country: None (occurrence: None)
  Receive Date: 20100427
  Receipt Date: 20100412
  Transmission Date: 20101027
  Serious: Yes (Hospitalization, Other)
  Sender: FDA-Public Use
  Company Number: AUR-APL-2009-01008

PATIENT
  Age: 40 Year
  Sex: Female

DRUGS (6)
  1. CITALOPRAM [Suspect]
     Indication: DEPRESSED MOOD
     Dosage: 40MG, ORAL
     Route: 048
  2. CLOZARIL [Suspect]
     Indication: SCHIZOPHRENIA
     Dosage: 350MG, DAILY, ORAL
     Route: 048
     Dates: start: 20000805, end: 20090914
  3. AMITRIPTYLINE HCL [Suspect]
     Indication: MOOD ALTERED
     Dosage: ORAL
     Route: 048
  4. AMITRIPTYLINE HCL [Concomitant]
  5. BALSALAZIDE [Concomitant]
  6. OMEPRAZOLE [Concomitant]

REACTIONS (8)
  - DIARRHOEA [None]
  - DRUG DOSE OMISSION [None]
  - INTESTINAL OBSTRUCTION [None]
  - NEUTROPHIL COUNT INCREASED [None]
  - PLATELET COUNT INCREASED [None]
  - PULMONARY THROMBOSIS [None]
  - VOMITING [None]
  - WHITE BLOOD CELL COUNT INCREASED [None]
